FAERS Safety Report 6426454-7 (Version None)
Quarter: 2009Q4

REPORT INFORMATION
  Report Type: 
  Country: None (occurrence: None)
  Receive Date: 20091104
  Receipt Date: 20091029
  Transmission Date: 20100525
  Serious: Yes (Death, Hospitalization, Other)
  Sender: FDA-Public Use
  Company Number: PHEH2009US13757

PATIENT
  Sex: Male
  Weight: 101.13 kg

DRUGS (11)
  1. EXJADE [Suspect]
     Indication: IRON OVERLOAD
     Dosage: 1000 MG, QD
     Route: 048
     Dates: start: 20080601, end: 20090731
  2. REVLIMID [Concomitant]
     Dosage: 25 MG, QD
  3. THALIDOMIDE [Concomitant]
     Dosage: UNK, UNK
     Dates: start: 20080701, end: 20081001
  4. CARVEDILOL [Concomitant]
     Dosage: 25 MG, Q12H
  5. ASPIRIN [Concomitant]
     Dosage: 81 MG, UNK
  6. LYRICA [Concomitant]
     Dosage: 100 MG, TID
  7. PRAVASTATIN [Concomitant]
     Dosage: 10 MG, QD
  8. COZAAR [Concomitant]
     Dosage: 50 MG, QD
  9. ANAGRELIDE HCL [Concomitant]
     Dosage: 1.5 MG/DAY
  10. LASIX [Concomitant]
     Dosage: 20 MG, QD
  11. VITAMIN B-12 [Concomitant]
     Dosage: 1000 UG, QMO
     Route: 030

REACTIONS (23)
  - ABDOMINAL DISTENSION [None]
  - ACUTE MEGAKARYOCYTIC LEUKAEMIA [None]
  - ANAEMIA [None]
  - ARTHRALGIA [None]
  - ASPIRATION JOINT [None]
  - ASTHENIA [None]
  - BLAST CELLS PRESENT [None]
  - COAGULATION TEST ABNORMAL [None]
  - DEATH [None]
  - DYSPNOEA [None]
  - EXTRAMEDULLARY HAEMOPOIESIS [None]
  - HAEMARTHROSIS [None]
  - HAEMATOMA EVACUATION [None]
  - HEPATOMEGALY [None]
  - JOINT SWELLING [None]
  - KNEE ARTHROPLASTY [None]
  - MYOCARDIAL INFARCTION [None]
  - NEUROPATHY PERIPHERAL [None]
  - OEDEMA PERIPHERAL [None]
  - PANCYTOPENIA [None]
  - THROMBOCYTOSIS [None]
  - VITAMIN B12 DEFICIENCY [None]
  - WHITE BLOOD CELL COUNT INCREASED [None]
